FAERS Safety Report 20317839 (Version 1)
Quarter: 2022Q1

REPORT INFORMATION
  Report Type: Spontaneous
  Country: US (occurrence: US)
  Receive Date: 20220110
  Receipt Date: 20220110
  Transmission Date: 20220423
  Serious: Yes (Other)
  Sender: FDA-Public Use
  Company Number: US-ELI_LILLY_AND_COMPANY-US202201000966

PATIENT
  Sex: Female

DRUGS (2)
  1. RETEVMO [Suspect]
     Active Substance: SELPERCATINIB
     Indication: Thyroid cancer metastatic
     Dosage: 80 MG, OTHER (2 IN THE MORNING AND 2 AT NIGHT)
     Route: 048
  2. CALCIUM [Concomitant]
     Active Substance: CALCIUM
     Indication: Thyroid therapy
     Dosage: UNK, UNKNOWN
     Route: 065

REACTIONS (3)
  - Brain neoplasm [Unknown]
  - Feeling abnormal [Unknown]
  - Nausea [Unknown]
